FAERS Safety Report 5624829-7 (Version None)
Quarter: 2008Q1

REPORT INFORMATION
  Report Type: 
  Country: None (occurrence: None)
  Receive Date: 20080213
  Receipt Date: 20080206
  Transmission Date: 20080703
  Serious: Yes (Other)
  Sender: FDA-Public Use
  Company Number: US-AVENTIS-200718440US

PATIENT
  Sex: Female
  Weight: 72.6 kg

DRUGS (10)
  1. ARAVA [Suspect]
     Indication: RHEUMATOID ARTHRITIS
     Dates: start: 20070701, end: 20071220
  2. COLESTID [Concomitant]
     Dosage: DOSE: UNK
  3. POTASSIUM CHLORIDE [Concomitant]
     Dosage: DOSE: UNK
  4. FLUOXETINE [Concomitant]
     Indication: DEPRESSION
     Dosage: DOSE: 10MG, 3 A DAY
     Dates: start: 20040101
  5. PREMARIN [Concomitant]
     Dosage: DOSE: UNK
  6. SYNTHROID [Concomitant]
     Dosage: DOSE QUANTITY: .015
     Dates: start: 19840101
  7. LIPITOR [Concomitant]
     Dates: start: 20040101
  8. DIAZINE KIMEI [Concomitant]
     Dosage: DOSE: UNK
  9. ACIPHEX [Concomitant]
     Dates: start: 20070101
  10. TRIAMTERENE [Concomitant]
     Dosage: DOSE QUANTITY: 37.5
     Dates: start: 19860101

REACTIONS (4)
  - ALOPECIA [None]
  - CARDIAC FAILURE [None]
  - FATIGUE [None]
  - HEART RATE INCREASED [None]
